FAERS Safety Report 10682267 (Version 3)
Quarter: 2015Q4

REPORT INFORMATION
  Report Type: Report from Study
  Country: SE (occurrence: SE)
  Receive Date: 20141230
  Receipt Date: 20151222
  Transmission Date: 20160304
  Serious: Yes (Hospitalization)
  Sender: FDA-Public Use
  Company Number: SE-JNJFOC-20141214949

PATIENT
  Age: 63 Year
  Sex: Female
  Weight: 48 kg

DRUGS (2)
  1. COLAZID [Concomitant]
     Indication: COLITIS ULCERATIVE
     Route: 065
     Dates: end: 20090212
  2. REMICADE [Suspect]
     Active Substance: INFLIXIMAB
     Indication: COLITIS ULCERATIVE
     Route: 042
     Dates: start: 20090119, end: 20090119

REACTIONS (2)
  - Colitis ulcerative [Recovered/Resolved]
  - Colectomy [Unknown]

NARRATIVE: CASE EVENT DATE: 20090206
